FAERS Safety Report 7245336-4 (Version None)
Quarter: 2011Q1

REPORT INFORMATION
  Report Type: 
  Country: None (occurrence: None)
  Receive Date: 20110126
  Receipt Date: 20110119
  Transmission Date: 20110831
  Serious: Yes (Other)
  Sender: FDA-Public Use
  Company Number: US-AMGEN-USASP2011003596

PATIENT
  Age: 58 Year
  Sex: Female

DRUGS (4)
  1. ESTRADIOL [Concomitant]
     Dosage: UNK
  2. MELOXICAM [Concomitant]
  3. ENBREL [Suspect]
     Indication: RHEUMATOID ARTHRITIS
     Dosage: 25 MG, 2 TIMES/WK
     Dates: start: 20020901
  4. ALENDRONATE SODIUM [Concomitant]

REACTIONS (1)
  - MALIGNANT MELANOMA IN SITU [None]
